FAERS Safety Report 9109954 (Version 2)
Quarter: 2013Q2

REPORT INFORMATION
  Report Type: Report from Study
  Country: US (occurrence: US)
  Receive Date: 20130222
  Receipt Date: 20130426
  Transmission Date: 20140414
  Serious: Yes (Hospitalization)
  Sender: FDA-Public Use
  Company Number: US-ACTELION-A-US2012-69702

PATIENT
  Age: 50 Year
  Sex: Female

DRUGS (2)
  1. TRACLEER [Suspect]
     Indication: PULMONARY ARTERIAL HYPERTENSION
     Dosage: UNK
     Route: 048
  2. ASPIRIN [Concomitant]

REACTIONS (10)
  - Breast pain [Unknown]
  - Chest pain [Unknown]
  - Bronchitis [Unknown]
  - Muscle spasms [Unknown]
  - Chest discomfort [Unknown]
  - Flushing [Unknown]
  - Muscular weakness [Unknown]
  - Fall [Unknown]
  - Nasopharyngitis [Unknown]
  - Drug dose omission [Unknown]
